FAERS Safety Report 4484293-0 (Version None)
Quarter: 2004Q3

REPORT INFORMATION
  Report Type: 
  Country: None (occurrence: None)
  Receive Date: 20040921
  Receipt Date: 20040122
  Transmission Date: 20050211
  Serious: Yes (Hospitalization)
  Sender: FDA-Public Use
  Company Number: 163-20785-04010613(0)

PATIENT
  Sex: Male
  Weight: 98 kg

DRUGS (4)
  1. THALOMID [Suspect]
     Indication: MULTIPLE MYELOMA
     Dosage: 50-150 MG, DAILY, ORAL
     Route: 048
     Dates: start: 20030821
  2. DOXIL [Suspect]
     Indication: MULTIPLE MYELOMA
     Dosage: 40 MG/M2, Q 28 DAYS, INTRAVENOUS
     Route: 042
     Dates: start: 20030821
  3. VINCRISTINE [Suspect]
     Indication: MULTIPLE MYELOMA
     Dosage: 2 MG
     Dates: start: 20030821
  4. DECADRON [Suspect]
     Dosage: 40 MG, QD X 4, ORAL
     Route: 048

REACTIONS (6)
  - ATELECTASIS [None]
  - DYSPNOEA [None]
  - LUNG INFILTRATION [None]
  - PLEURAL EFFUSION [None]
  - PULMONARY EMBOLISM [None]
  - SPINAL DISORDER [None]
